FAERS Safety Report 18771690 (Version 2)
Quarter: 2021Q1

REPORT INFORMATION
  Report Type: Spontaneous
  Country: PT (occurrence: PT)
  Receive Date: 20210122
  Receipt Date: 20210212
  Transmission Date: 20210419
  Serious: Yes (Death, Hospitalization, Other)
  Sender: FDA-Public Use
  Company Number: PT-ASTELLAS-2021US002189

PATIENT
  Age: 75 Year
  Sex: Female

DRUGS (7)
  1. AMPHOTERICIN B, LIPOSOME [Suspect]
     Active Substance: AMPHOTERICIN B
     Indication: CUTANEOUS LEISHMANIASIS
     Route: 042
  2. AMPHOTERICIN B, LIPOSOME [Suspect]
     Active Substance: AMPHOTERICIN B
     Indication: MUCOCUTANEOUS LEISHMANIASIS
  3. PREDNISOLONE. [Suspect]
     Active Substance: PREDNISOLONE
     Indication: RENAL TRANSPLANT
     Dosage: 5 MG, UNKNOWN FREQ. (LOW DOSE)
     Route: 065
  4. MYCOPHENOLATE MOFETIL. [Suspect]
     Active Substance: MYCOPHENOLATE MOFETIL
     Indication: RENAL TRANSPLANT
     Route: 065
  5. AMPHOTERICIN B, LIPOSOME [Suspect]
     Active Substance: AMPHOTERICIN B
     Indication: VISCERAL LEISHMANIASIS
     Route: 042
  6. TACROLIMUS. [Suspect]
     Active Substance: TACROLIMUS
     Dosage: UNK UNK, UNKNOWN FREQ. (THROUGH LEVELS 2?4 NG/ML)
     Route: 065
  7. TACROLIMUS. [Suspect]
     Active Substance: TACROLIMUS
     Indication: RENAL TRANSPLANT
     Dosage: UNK UNK, UNKNOWN FREQ. (THROUGH LEVELS 4?7 NG/ML)
     Route: 065

REACTIONS (10)
  - Epstein-Barr virus infection [Unknown]
  - Mucocutaneous leishmaniasis [Fatal]
  - Visceral leishmaniasis [Fatal]
  - Oral herpes [Recovered/Resolved]
  - Cutaneous leishmaniasis [Fatal]
  - Herpes simplex [Recovered/Resolved]
  - Pseudomonal bacteraemia [Unknown]
  - Serratia bacteraemia [Unknown]
  - Squamous cell carcinoma [Unknown]
  - Drug ineffective [Fatal]
